FAERS Safety Report 25468256 (Version 1)
Quarter: 2025Q2

REPORT INFORMATION
  Report Type: Spontaneous
  Country: CN (occurrence: CN)
  Receive Date: 20250623
  Receipt Date: 20250623
  Transmission Date: 20250716
  Serious: Yes (Life-Threatening, Other)
  Sender: ELI LILLY AND COMPANY
  Company Number: CN-CHEPLA-2025007301

PATIENT
  Age: 33 Year
  Sex: Male
  Weight: 54 kg

DRUGS (2)
  1. GEMCITABINE HYDROCHLORIDE [Suspect]
     Active Substance: GEMCITABINE HYDROCHLORIDE
     Indication: Pancreatic carcinoma metastatic
     Route: 042
  2. PACLITAXEL [Suspect]
     Active Substance: PACLITAXEL
     Indication: Pancreatic carcinoma metastatic
     Route: 042

REACTIONS (19)
  - Leukopenia [Unknown]
  - Metastases to central nervous system [Unknown]
  - Hydrothorax [Unknown]
  - Ascites [Unknown]
  - Metastases to peritoneum [Unknown]
  - Lymphangiosis carcinomatosa [Unknown]
  - Metastases to bone [Unknown]
  - Metastases to lymph nodes [Unknown]
  - Metastases to muscle [Unknown]
  - Pulmonary embolism [Unknown]
  - Pericardial effusion [Unknown]
  - Seizure [Unknown]
  - Malignant neoplasm progression [Unknown]
  - Fatigue [Unknown]
  - Vomiting [Unknown]
  - Anaemia [Unknown]
  - Liver function test abnormal [Unknown]
  - C-reactive protein increased [Unknown]
  - Blood creatinine increased [Unknown]
